FAERS Safety Report 19977868 (Version 1)
Quarter: 2021Q4

REPORT INFORMATION
  Report Type: Spontaneous
  Country: US (occurrence: US)
  Receive Date: 20211020
  Receipt Date: 20211020
  Transmission Date: 20220303
  Serious: No
  Sender: FDA-Public Use
  Company Number: None

PATIENT
  Age: 45 Year
  Sex: Female
  Weight: 74.25 kg

DRUGS (13)
  1. EMGALITY [Suspect]
     Active Substance: GALCANEZUMAB-GNLM
     Indication: Migraine
     Dosage: ?          OTHER FREQUENCY:ONCE PER MONTH;
     Route: 058
  2. FIORICET [Concomitant]
     Active Substance: ACETAMINOPHEN\BUTALBITAL\CAFFEINE
  3. XANAX [Concomitant]
     Active Substance: ALPRAZOLAM
  4. ZOFRAN [Concomitant]
     Active Substance: ONDANSETRON HYDROCHLORIDE
  5. TRAMADOL [Concomitant]
     Active Substance: TRAMADOL
  6. LEVOTHYROXINE [Concomitant]
     Active Substance: LEVOTHYROXINE
  7. WELLBUTRIN [Concomitant]
     Active Substance: BUPROPION HYDROCHLORIDE
  8. OZEMAPRAZOLE [Concomitant]
  9. BACLOFEN [Concomitant]
     Active Substance: BACLOFEN
  10. VITAMIN D NOS [Concomitant]
     Active Substance: VITAMIN D NOS
  11. IBUPROFEN [Concomitant]
     Active Substance: IBUPROFEN
  12. MECLEZINE [Concomitant]
  13. MELATONIN [Concomitant]
     Active Substance: MELATONIN

REACTIONS (5)
  - Arthralgia [None]
  - Constipation [None]
  - Alopecia [None]
  - Nausea [None]
  - Pain [None]

NARRATIVE: CASE EVENT DATE: 20210925
